FAERS Safety Report 8116373-2 (Version None)
Quarter: 2012Q1

REPORT INFORMATION
  Report Type: 
  Country: None (occurrence: None)
  Receive Date: 20120206
  Receipt Date: 20120126
  Transmission Date: 20120608
  Serious: Yes (Hospitalization)
  Sender: FDA-Public Use
  Company Number: FR-GLAXOSMITHKLINE-B0771343A

PATIENT
  Sex: Female
  Weight: 49 kg

DRUGS (6)
  1. GEMCITABINE [Suspect]
     Indication: LEIOMYOSARCOMA
     Dosage: 3080MG CUMULATIVE DOSE
     Route: 042
     Dates: start: 20111208
  2. FLECAINIDE ACETATE [Concomitant]
     Indication: ARRHYTHMIA
     Route: 048
     Dates: start: 20111126
  3. VOTRIENT [Suspect]
     Indication: LEIOMYOSARCOMA
     Dosage: 4000MG CUMULATIVE DOSE
     Route: 048
     Dates: start: 20111208
  4. ASPIRIN [Concomitant]
     Indication: ARRHYTHMIA
     Route: 048
     Dates: start: 20111126
  5. MOTILIUM [Concomitant]
     Indication: NAUSEA
     Route: 048
     Dates: start: 20090101
  6. NEXIUM [Concomitant]
     Indication: ABDOMINAL PAIN UPPER
     Route: 048
     Dates: start: 20110717

REACTIONS (9)
  - HAEMOGLOBIN DECREASED [None]
  - GASTROINTESTINAL DISORDER [None]
  - THROMBOCYTOPENIA [None]
  - HYPOPROTEINAEMIA [None]
  - TOXICITY TO VARIOUS AGENTS [None]
  - VOMITING [None]
  - CARDIAC MURMUR [None]
  - ATRIAL FIBRILLATION [None]
  - GENERAL PHYSICAL CONDITION NORMAL [None]
